FAERS Safety Report 13245619 (Version 3)
Quarter: 2017Q2

REPORT INFORMATION
  Report Type: Spontaneous
  Country: RU (occurrence: RU)
  Receive Date: 20170217
  Receipt Date: 20170410
  Transmission Date: 20170830
  Serious: Yes (Other)
  Sender: FDA-Public Use
  Company Number: RU-ROCHE-1894235

PATIENT
  Age: 55 Year
  Sex: Male

DRUGS (4)
  1. ZELBORAF [Suspect]
     Active Substance: VEMURAFENIB
     Indication: METASTATIC MALIGNANT MELANOMA
     Dosage: 960 MG 2 TIMES PER DAY
     Route: 048
     Dates: start: 20141210, end: 201505
  2. ZELBORAF [Suspect]
     Active Substance: VEMURAFENIB
     Dosage: 960 MG 2 TIMES PER DAY
     Route: 048
     Dates: start: 201505, end: 201507
  3. ZELBORAF [Suspect]
     Active Substance: VEMURAFENIB
     Dosage: 960 MG 2 TIMES PER DAY
     Route: 048
     Dates: start: 201507
  4. DEXAMETHASONE. [Concomitant]
     Active Substance: DEXAMETHASONE
     Dosage: 8MG 2 TIMES PER DAY FOR 7 DAYS
     Route: 030

REACTIONS (6)
  - Photosensitivity reaction [Recovered/Resolved]
  - Arthralgia [Recovered/Resolved]
  - Joint swelling [Recovered/Resolved]
  - Erythema [Recovered/Resolved]
  - Skin exfoliation [Recovered/Resolved]
  - Peripheral swelling [Recovered/Resolved]

NARRATIVE: CASE EVENT DATE: 201505
